FAERS Safety Report 20059300 (Version 1)
Quarter: 2021Q4

REPORT INFORMATION
  Report Type: Report from Study
  Country: IL (occurrence: IL)
  Receive Date: 20211111
  Receipt Date: 20211111
  Transmission Date: 20220303
  Serious: Yes (Death, Hospitalization)
  Sender: FDA-Public Use
  Company Number: IL-ABBVIE-21K-082-4158312-00

PATIENT
  Age: 67 Year
  Sex: Female
  Weight: 84 kg

DRUGS (9)
  1. SKYRIZI [Suspect]
     Active Substance: RISANKIZUMAB-RZAA
     Indication: Psoriasis
     Route: 058
     Dates: end: 20210709
  2. BISOPROLOL FUMARATE [Concomitant]
     Active Substance: BISOPROLOL FUMARATE
     Indication: Hypertension
     Route: 048
     Dates: start: 201808
  3. REPATHA [Concomitant]
     Active Substance: EVOLOCUMAB
     Indication: Lipid metabolism disorder
     Dosage: 140/1MG/ML
     Route: 058
     Dates: start: 202004
  4. ASPIRIN [Concomitant]
     Active Substance: ASPIRIN
     Indication: Myocardial ischaemia
     Route: 048
     Dates: start: 201604
  5. CYMBALTA [Concomitant]
     Active Substance: DULOXETINE HYDROCHLORIDE
     Indication: Diabetic nephropathy
     Route: 048
     Dates: start: 201411
  6. FUSID [Concomitant]
     Indication: Renal failure
     Route: 048
     Dates: start: 201704
  7. PREGABALIN [Concomitant]
     Active Substance: PREGABALIN
     Indication: Diabetes mellitus
     Route: 048
     Dates: start: 201209
  8. TRULICITY [Concomitant]
     Active Substance: DULAGLUTIDE
     Indication: Diabetes mellitus
     Dosage: 1.5/0.5 MG/ML
     Route: 058
     Dates: start: 202005
  9. APIDRA [Concomitant]
     Active Substance: INSULIN GLULISINE
     Indication: Diabetes mellitus
     Dosage: 100 U/ML
     Route: 058
     Dates: start: 201407

REACTIONS (5)
  - COVID-19 [Fatal]
  - Pyrexia [Recovered/Resolved]
  - Acute kidney injury [Recovered/Resolved]
  - Sepsis [Recovered/Resolved with Sequelae]
  - Acute kidney injury [Recovered/Resolved with Sequelae]

NARRATIVE: CASE EVENT DATE: 20210717
